FAERS Safety Report 7085217-2 (Version None)
Quarter: 2010Q4

REPORT INFORMATION
  Report Type: 
  Country: None (occurrence: None)
  Receive Date: 20101027
  Receipt Date: 20101013
  Transmission Date: 20110411
  Serious: Yes (Death, Other)
  Sender: FDA-Public Use
  Company Number: 011439

PATIENT

DRUGS (3)
  1. BUSULFEX [Suspect]
     Indication: STEM CELL TRANSPLANT
     Dosage: 0.8 MG/KG, Q6HR, INTRAVENOUS
     Route: 042
  2. CYCLOPHOSPHAMIDE [Concomitant]
  3. CYCLOSPORINE [Concomitant]

REACTIONS (5)
  - ACUTE GRAFT VERSUS HOST DISEASE [None]
  - HEPATOTOXICITY [None]
  - INFECTION [None]
  - RECURRENT CANCER [None]
  - VENOOCCLUSIVE DISEASE [None]
